FAERS Safety Report 13424785 (Version 1)
Quarter: 2017Q2

REPORT INFORMATION
  Report Type: Report from Study
  Country: US (occurrence: US)
  Receive Date: 20170410
  Receipt Date: 20170410
  Transmission Date: 20170830
  Serious: Yes (Hospitalization)
  Sender: FDA-Public Use
  Company Number: US-ACTELION-A-US2016-147072

PATIENT
  Age: 55 Year
  Sex: Female
  Weight: 103.4 kg

DRUGS (5)
  1. UPTRAVI [Suspect]
     Active Substance: SELEXIPAG
     Dosage: 400 MCG, BID
     Route: 048
  2. UPTRAVI [Suspect]
     Active Substance: SELEXIPAG
     Dosage: 600 MCG, BID
     Route: 048
  3. UPTRAVI [Suspect]
     Active Substance: SELEXIPAG
     Dosage: 200 MCG, BID
     Route: 048
     Dates: start: 20161007
  4. UPTRAVI [Suspect]
     Active Substance: SELEXIPAG
     Indication: PULMONARY ARTERIAL HYPERTENSION
     Dosage: 800 MCG, BID
     Route: 048
  5. ADEMPAS [Concomitant]
     Active Substance: RIOCIGUAT

REACTIONS (23)
  - Dyspnoea exertional [Unknown]
  - Swelling [Unknown]
  - Malaise [Unknown]
  - Mood altered [Unknown]
  - Pain [Unknown]
  - Fluid retention [Unknown]
  - Weight increased [Unknown]
  - Oedema peripheral [Unknown]
  - Bone pain [Unknown]
  - Gastrointestinal disorder [Unknown]
  - Pain in extremity [Unknown]
  - Nausea [Unknown]
  - Myalgia [Unknown]
  - Pain in jaw [Unknown]
  - Chest pain [Unknown]
  - Fatigue [Unknown]
  - Oxygen saturation decreased [Unknown]
  - Dysgeusia [Unknown]
  - Viral upper respiratory tract infection [Unknown]
  - Drug intolerance [Unknown]
  - Dyspnoea [Unknown]
  - Generalised oedema [Unknown]
  - Skin infection [Unknown]
